FAERS Safety Report 9725623 (Version 2)
Quarter: 2013Q4

REPORT INFORMATION
  Report Type: Report from Study
  Country: US (occurrence: US)
  Receive Date: 20131203
  Receipt Date: 20131212
  Transmission Date: 20140711
  Serious: Yes (Hospitalization)
  Sender: FDA-Public Use
  Company Number: US-BAYER-2013-143794

PATIENT
  Age: 68 Year
  Sex: Male

DRUGS (1)
  1. SORAFENIB (RAF KINASE INHIBITOR) [Suspect]
     Indication: NON-SMALL CELL LUNG CANCER METASTATIC
     Dosage: 400 MG, BID
     Route: 048

REACTIONS (6)
  - Pulmonary embolism [None]
  - Pneumonia [None]
  - Lung infection [None]
  - Dyspnoea [None]
  - Tachycardia [None]
  - Pleural effusion [None]
